FAERS Safety Report 6434999-9 (Version None)
Quarter: 2009Q4

REPORT INFORMATION
  Report Type: 
  Country: None (occurrence: None)
  Receive Date: 20091110
  Receipt Date: 20091027
  Transmission Date: 20100525
  Serious: Yes (Other)
  Sender: FDA-Public Use
  Company Number: PHHY2009FR47130

PATIENT
  Sex: Female

DRUGS (1)
  1. VIVELLE-DOT [Suspect]
     Indication: HORMONE THERAPY
     Dosage: 25, 2 PATCHES BY WEEK
     Route: 062

REACTIONS (3)
  - COUGH [None]
  - EOSINOPHIL COUNT INCREASED [None]
  - MUSCLE RUPTURE [None]
